FAERS Safety Report 8135551-X (Version None)
Quarter: 2012Q1

REPORT INFORMATION
  Report Type: 
  Country: None (occurrence: None)
  Receive Date: 20120210
  Receipt Date: 20120201
  Transmission Date: 20120608
  Serious: Yes (Hospitalization)
  Sender: FDA-Public Use
  Company Number: 2011-01126

PATIENT
  Age: 50 Year
  Sex: Female
  Weight: 81.6475 kg

DRUGS (5)
  1. VITAMIN D [Concomitant]
  2. CEFUROXIME AXETIL [Suspect]
     Indication: PROPHYLAXIS
     Dosage: 500 MG (250 MG, 2 IN 1 D), PER ORAL
     Route: 048
     Dates: start: 20110902, end: 20110909
  3. LISINOPRIL AND HYDROCHLOROTHIAZIDE [Concomitant]
  4. ACIDOPHILUS [Concomitant]
  5. OMEPRAZOLE [Concomitant]

REACTIONS (6)
  - NAUSEA [None]
  - PAIN [None]
  - PYREXIA [None]
  - CLOSTRIDIAL INFECTION [None]
  - DEHYDRATION [None]
  - HEADACHE [None]
